FAERS Safety Report 23486368 (Version 1)
Quarter: 2024Q1

REPORT INFORMATION
  Report Type: Spontaneous
  Country: CN (occurrence: None)
  Receive Date: 20240206
  Receipt Date: 20240206
  Transmission Date: 20240410
  Serious: Yes (Hospitalization, Other)
  Sender: FDA-Public Use
  Company Number: 2024A026905

PATIENT
  Age: 16316 Day
  Sex: Female
  Weight: 57 kg

DRUGS (8)
  1. FULVESTRANT [Suspect]
     Active Substance: FULVESTRANT
     Indication: Breast cancer
     Route: 030
     Dates: start: 20220623, end: 20220623
  2. ABEMACICLIB [Concomitant]
     Active Substance: ABEMACICLIB
     Indication: Breast cancer
     Dosage: 1#BID
  3. HYDROTALCITE [Concomitant]
     Active Substance: HYDROTALCITE
     Indication: Gastric mucosa erythema
  4. CALCIUM CARBONATE [Concomitant]
     Active Substance: CALCIUM CARBONATE
     Indication: Osteoporosis
  5. EBASTINE [Concomitant]
     Active Substance: EBASTINE
     Indication: Allergy prophylaxis
  6. CETIRIZINE [Concomitant]
     Active Substance: CETIRIZINE HYDROCHLORIDE
     Indication: Allergy prophylaxis
     Dosage: 1#QN
  7. HALOMETASONE [Concomitant]
     Active Substance: HALOMETASONE
     Indication: Pruritus
     Dosage: BID
  8. CETYLPYRIDINIUM CHLORIDE [Concomitant]
     Active Substance: CETYLPYRIDINIUM CHLORIDE

REACTIONS (2)
  - Drug eruption [Recovering/Resolving]
  - Drug eruption [Unknown]

NARRATIVE: CASE EVENT DATE: 20220626
